FAERS Safety Report 7815805-4 (Version None)
Quarter: 2011Q4

REPORT INFORMATION
  Report Type: 
  Country: None (occurrence: None)
  Receive Date: 20111014
  Receipt Date: 20111006
  Transmission Date: 20120403
  Serious: Yes (Hospitalization)
  Sender: FDA-Public Use
  Company Number: US-CELGENEUS-163-21880-11080716

PATIENT
  Sex: Male
  Weight: 130.75 kg

DRUGS (18)
  1. IMODIUM [Concomitant]
     Route: 048
     Dates: start: 20110601, end: 20110601
  2. NEXIUM [Concomitant]
     Dosage: 40 MILLIGRAM
     Route: 048
     Dates: start: 20000101
  3. M.V.I. [Concomitant]
     Dosage: 1
     Route: 048
     Dates: start: 19900101
  4. ANTIEMETIC [Concomitant]
     Route: 048
     Dates: start: 20110601, end: 20110601
  5. ZETIA [Concomitant]
     Dosage: 10 MILLIGRAM
     Route: 048
     Dates: start: 20110101
  6. METOPROLOL TARTRATE [Concomitant]
     Dosage: 25 MILLIGRAM
     Route: 048
     Dates: start: 20020101
  7. LOTREL [Concomitant]
     Dosage: 10/40 MG
     Route: 048
     Dates: start: 20030101
  8. CRESTOR [Concomitant]
     Dosage: 10 MILLIGRAM
     Route: 048
     Dates: start: 20030101
  9. CHLORTHALIDONE [Concomitant]
     Dosage: 25 MILLIGRAM
     Route: 048
     Dates: start: 20030101
  10. LYRICA [Concomitant]
     Dosage: 50 MILLIGRAM
     Route: 048
     Dates: start: 20090101
  11. ZYRTEC [Concomitant]
     Dosage: 10 MILLIGRAM
     Route: 048
     Dates: start: 19950101
  12. GLUCOSAMINE [Concomitant]
     Dosage: 1
     Route: 048
     Dates: start: 19950101
  13. VELCADE [Concomitant]
     Indication: MULTIPLE MYELOMA
     Dosage: 1 MILLIGRAM/SQ. METER
     Route: 041
     Dates: start: 20110527
  14. METAMUCIL (PROPH) [Concomitant]
     Dosage: 1
     Route: 048
  15. ZOMETA [Concomitant]
     Indication: MULTIPLE MYELOMA
     Dosage: 3 MILLIGRAM
     Route: 041
     Dates: start: 20110527
  16. ASPIRIN [Concomitant]
     Dosage: 325 X 1/2
     Route: 048
     Dates: start: 19900101
  17. MELATONIN [Concomitant]
     Dosage: 1
     Route: 048
     Dates: start: 19850101
  18. REVLIMID [Suspect]
     Indication: MULTIPLE MYELOMA
     Dosage: 15 MILLIGRAM
     Route: 048
     Dates: start: 20110718, end: 20110807

REACTIONS (2)
  - PERICARDITIS [None]
  - UPPER RESPIRATORY TRACT INFECTION [None]
